FAERS Safety Report 9298173 (Version 1)
Quarter: 2013Q1

REPORT INFORMATION
  Report Type: Spontaneous
  Country: US (occurrence: None)
  Receive Date: 20121227
  Receipt Date: 20121227
  Transmission Date: 20140127
  Serious: No
  Sender: FDA-Public Use
  Company Number: PHEH2012US007382

PATIENT
  Age: 27 Year
  Sex: Female

DRUGS (3)
  1. AFINITOR [Suspect]
     Route: 048
     Dates: start: 20120328
  2. CARBATROL (CARBAMAZEPINE) [Concomitant]
  3. VIMPAT (LACOSAMIDE) [Concomitant]

REACTIONS (13)
  - Somnolence [None]
  - Blood cholesterol increased [None]
  - Acne [None]
  - Drug level increased [None]
  - Anger [None]
  - Impatience [None]
  - Logorrhoea [None]
  - Amenorrhoea [None]
  - Nasopharyngitis [None]
  - Sneezing [None]
  - Rhinorrhoea [None]
  - Cough [None]
  - Blood triglycerides increased [None]
